FAERS Safety Report 23688405 (Version 1)
Quarter: 2024Q1

REPORT INFORMATION
  Report Type: Report from Study
  Country: US (occurrence: US)
  Receive Date: 20240329
  Receipt Date: 20240329
  Transmission Date: 20240410
  Serious: Yes (Hospitalization)
  Sender: FDA-Public Use
  Company Number: US-HORIZON THERAPEUTICS-HZN-2023-010331

PATIENT

DRUGS (8)
  1. KRYSTEXXA [Suspect]
     Active Substance: PEGLOTICASE
     Indication: Gout
     Dosage: 8 MG, EVERY 2 WEEKS; FIRST INFUSION
     Route: 042
     Dates: start: 20231024
  2. KRYSTEXXA [Suspect]
     Active Substance: PEGLOTICASE
     Dosage: 8 MG, EVERY 2 WEEKS, SECOND INFUSION
     Route: 042
     Dates: start: 20231107
  3. KRYSTEXXA [Suspect]
     Active Substance: PEGLOTICASE
     Dosage: 8 MG, EVERY 2 WEEKS, 3RD INFUSION
     Route: 042
     Dates: start: 20231121
  4. KRYSTEXXA [Suspect]
     Active Substance: PEGLOTICASE
     Dosage: 8 MG, EVERY 2 WEEKS, FOURTH INFUSION
     Route: 042
     Dates: start: 20231208
  5. KRYSTEXXA [Suspect]
     Active Substance: PEGLOTICASE
     Dosage: LAST INFUSION
     Route: 042
     Dates: start: 20240112, end: 20240112
  6. METHOTREXATE [Suspect]
     Active Substance: METHOTREXATE
     Indication: Product used for unknown indication
     Dosage: UNK
     Route: 065
  7. METHYLPREDNISOLONE [Concomitant]
     Active Substance: METHYLPREDNISOLONE
     Indication: Premedication
     Dosage: 125 MG
     Route: 042
     Dates: start: 20231208, end: 20231208
  8. FOLIC ACID [Concomitant]
     Active Substance: FOLIC ACID
     Indication: Product used for unknown indication
     Dosage: UNK
     Route: 065

REACTIONS (15)
  - Syncope [Unknown]
  - Hypotension [Unknown]
  - Blood pressure decreased [Recovered/Resolved]
  - Visual impairment [Recovered/Resolved]
  - Urticaria [Recovered/Resolved]
  - Lethargy [Unknown]
  - Hyperhidrosis [Unknown]
  - Pallor [Unknown]
  - Somnolence [Recovered/Resolved]
  - Snoring [Recovered/Resolved]
  - Rash [Recovered/Resolved]
  - Hypotension [Unknown]
  - Infusion related reaction [Recovered/Resolved]
  - Gout [Recovered/Resolved]
  - Gout [Recovering/Resolving]

NARRATIVE: CASE EVENT DATE: 20231101
